FAERS Safety Report 12935734 (Version 2)
Quarter: 2017Q1

REPORT INFORMATION
  Report Type: Spontaneous
  Country: GB (occurrence: GB)
  Receive Date: 20161114
  Receipt Date: 20170106
  Transmission Date: 20170428
  Serious: Yes (Hospitalization)
  Sender: FDA-Public Use
  Company Number: GB-ACCORD-045595

PATIENT
  Age: 62 Year
  Sex: Male

DRUGS (6)
  1. AMLODIPINE [Concomitant]
     Active Substance: AMLODIPINE BESYLATE
     Indication: HYPERTENSION
     Dates: start: 2010
  2. ATORVASTATIN [Concomitant]
     Active Substance: ATORVASTATIN
     Indication: HYPERCHOLESTEROLAEMIA
     Route: 048
     Dates: start: 20140408
  3. BISOPROLOL [Concomitant]
     Active Substance: BISOPROLOL
     Indication: MYOCARDIAL ISCHAEMIA
     Dates: start: 20140408
  4. CLOPIDOGREL [Suspect]
     Active Substance: CLOPIDOGREL BISULFATE
     Indication: CARDIOVASCULAR DISORDER
     Route: 048
     Dates: start: 20140408, end: 20160911
  5. ASPIRIN. [Suspect]
     Active Substance: ASPIRIN
     Indication: MYOCARDIAL ISCHAEMIA
     Route: 048
     Dates: start: 20140408, end: 20140911
  6. IRON [Concomitant]
     Active Substance: IRON
     Indication: FATIGUE
     Dates: start: 2009

REACTIONS (4)
  - Rectal haemorrhage [Recovered/Resolved]
  - Malaise [Unknown]
  - Vomiting [Unknown]
  - Diarrhoea [Unknown]

NARRATIVE: CASE EVENT DATE: 20160908
